FAERS Safety Report 15607033 (Version 1)
Quarter: 2018Q4

REPORT INFORMATION
  Report Type: Spontaneous
  Country: US (occurrence: US)
  Receive Date: 20181106
  Receipt Date: 20181106
  Transmission Date: 20190205
  Serious: No
  Sender: FDA-Public Use
  Company Number: None

PATIENT
  Age: 62 Year
  Sex: Female

DRUGS (2)
  1. CAPECITABINE 500MG WEST WARD [Suspect]
     Active Substance: CAPECITABINE
     Indication: BREAST CANCER FEMALE
     Dosage: 500MG TAKE 1300MG BY MOUTH TWICE DAILY FOR 14DAYS THEN
     Route: 048
     Dates: start: 20181015
  2. CAPECITABINE 500MG WEST WARD [Suspect]
     Active Substance: CAPECITABINE
     Dosage: TAKE 1300MG TWICE DAILY FOR 14DAYS THEN 7 DAYS OFF ORALLY
     Route: 048
     Dates: start: 20181015

REACTIONS (4)
  - Joint swelling [None]
  - Onychoclasis [None]
  - Skin discolouration [None]
  - Diarrhoea [None]

NARRATIVE: CASE EVENT DATE: 20181030
